FAERS Safety Report 23857712 (Version 1)
Quarter: 2024Q2

REPORT INFORMATION
  Report Type: Spontaneous
  Country: US (occurrence: US)
  Receive Date: 20240515
  Receipt Date: 20240515
  Transmission Date: 20240716
  Serious: No
  Sender: FDA-Public Use
  Company Number: US-Kiniksa Pharmaceuticals Ltd.-2023KPU000912

PATIENT
  Age: 64 Year
  Sex: Female

DRUGS (3)
  1. ARCALYST [Suspect]
     Active Substance: RILONACEPT
     Indication: Myopericarditis
     Route: 058
     Dates: start: 20230915
  2. ARCALYST [Suspect]
     Active Substance: RILONACEPT
     Indication: Pericarditis
  3. ARCALYST [Suspect]
     Active Substance: RILONACEPT
     Indication: Pericarditis

REACTIONS (15)
  - Injection site haemorrhage [Unknown]
  - Injection site pain [Unknown]
  - Incorrect dose administered [Unknown]
  - Nausea [Unknown]
  - Regurgitation [Unknown]
  - Fatigue [Unknown]
  - Myocarditis [Unknown]
  - Rash pruritic [Unknown]
  - Exposure to SARS-CoV-2 [Unknown]
  - Feeling abnormal [Unknown]
  - Muscular weakness [Unknown]
  - Renal impairment [Unknown]
  - Dermatomyositis [Unknown]
  - Injection site bruising [Unknown]
  - Rash [Unknown]

NARRATIVE: CASE EVENT DATE: 20230922
